FAERS Safety Report 8590064-6 (Version None)
Quarter: 2012Q3

REPORT INFORMATION
  Report Type: 
  Country: None (occurrence: None)
  Receive Date: 20120813
  Receipt Date: 19930921
  Transmission Date: 20120928
  Serious: Yes (Other)
  Sender: FDA-Public Use
  Company Number: US-ROCHE-1099773

PATIENT
  Age: 55 Year
  Sex: Male

DRUGS (3)
  1. ACTIVASE [Suspect]
     Indication: PRODUCT USED FOR UNKNOWN INDICATION
     Route: 042
  2. MAGNESIUM SULFATE [Concomitant]
  3. ACTIVASE [Suspect]
     Route: 042

REACTIONS (4)
  - NAUSEA [None]
  - DIZZINESS [None]
  - HYPERHIDROSIS [None]
  - PAIN [None]
